FAERS Safety Report 7074669-X (Version None)
Quarter: 2010Q4

REPORT INFORMATION
  Report Type: 
  Country: None (occurrence: None)
  Receive Date: 20101029
  Receipt Date: 20101025
  Transmission Date: 20110411
  Serious: Yes (Hospitalization)
  Sender: FDA-Public Use
  Company Number: B0681028A

PATIENT
  Sex: Female

DRUGS (5)
  1. AUGMENTIN '125' [Suspect]
     Indication: BRONCHITIS
     Dosage: 3G PER DAY
     Route: 048
     Dates: start: 20100925, end: 20101003
  2. KEPPRA [Suspect]
     Indication: PAIN
     Dosage: 250MG TWICE PER DAY
     Route: 048
     Dates: start: 20100928, end: 20100930
  3. SKENAN [Suspect]
     Indication: PAIN
     Dosage: 30MG TWICE PER DAY
     Route: 048
     Dates: start: 20100926, end: 20101002
  4. FOSAVANCE [Suspect]
     Indication: OSTEOPOROSIS
     Dosage: 1UNIT WEEKLY
     Route: 048
     Dates: end: 20100924
  5. AMLODIPINE [Concomitant]
     Route: 065

REACTIONS (3)
  - PRURITUS [None]
  - RASH [None]
  - RASH PAPULAR [None]
